FAERS Safety Report 6721954-4 (Version None)
Quarter: 2010Q2

REPORT INFORMATION
  Report Type: 
  Country: None (occurrence: None)
  Receive Date: 20100512
  Receipt Date: 20100503
  Transmission Date: 20101027
  Serious: Yes (Other)
  Sender: FDA-Public Use
  Company Number: A0857709A

PATIENT
  Sex: Female

DRUGS (1)
  1. COREG [Suspect]
     Route: 065

REACTIONS (1)
  - MITRAL VALVE INCOMPETENCE [None]
